FAERS Safety Report 15088677 (Version 1)
Quarter: 2018Q2

REPORT INFORMATION
  Report Type: Spontaneous
  Country: US (occurrence: US)
  Receive Date: 20180608
  Receipt Date: 20180608
  Transmission Date: 20180711
  Serious: Yes (Disabling)
  Sender: FDA-Public Use
  Company Number: None

PATIENT
  Age: 69 Year
  Sex: Female
  Weight: 106.2 kg

DRUGS (4)
  1. CIPROFLOXACIN. [Suspect]
     Active Substance: CIPROFLOXACIN
     Indication: CYSTITIS
     Route: 048
  2. VITAMIN D3 [Concomitant]
     Active Substance: CHOLECALCIFEROL
  3. OMEGA 3-6-9 [Concomitant]
     Active Substance: FISH OIL
  4. MULTIVITAMIN [Concomitant]
     Active Substance: VITAMINS

REACTIONS (11)
  - Walking aid user [None]
  - Peripheral swelling [None]
  - Joint swelling [None]
  - Arthralgia [None]
  - Decreased interest [None]
  - Gait disturbance [None]
  - Fatigue [None]
  - Decreased appetite [None]
  - Musculoskeletal stiffness [None]
  - Insomnia [None]
  - Speech disorder [None]

NARRATIVE: CASE EVENT DATE: 20170102
